FAERS Safety Report 19579917 (Version 2)
Quarter: 2021Q3

REPORT INFORMATION
  Report Type: Spontaneous
  Country: US (occurrence: US)
  Receive Date: 20210719
  Receipt Date: 20210823
  Transmission Date: 20211014
  Serious: No
  Sender: FDA-Public Use
  Company Number: US-BAUSCH-BL-2021-024748

PATIENT
  Age: 34 Year
  Sex: Female

DRUGS (4)
  1. XIFAXAN [Suspect]
     Active Substance: RIFAXIMIN
     Indication: DIARRHOEA
  2. XIFAXAN [Suspect]
     Active Substance: RIFAXIMIN
     Indication: OFF LABEL USE
  3. NEOMYCIN EAR DROPS [Suspect]
     Active Substance: NEOMYCIN
     Indication: PRODUCT USED FOR UNKNOWN INDICATION
     Route: 065
     Dates: start: 2021, end: 2021
  4. XIFAXAN [Suspect]
     Active Substance: RIFAXIMIN
     Indication: GASTROINTESTINAL BACTERIAL OVERGROWTH
     Route: 048
     Dates: start: 2021, end: 2021

REACTIONS (3)
  - Musculoskeletal stiffness [Not Recovered/Not Resolved]
  - Ear discomfort [Recovering/Resolving]
  - Off label use [Unknown]

NARRATIVE: CASE EVENT DATE: 2021
